FAERS Safety Report 9825863 (Version 2)
Quarter: 2014Q1

REPORT INFORMATION
  Report Type: Spontaneous
  Country: US (occurrence: None)
  Receive Date: 20131104
  Receipt Date: 20140313
  Transmission Date: 20141002
  Serious: Yes (Other)
  Sender: FDA-Public Use
  Company Number: 1000049207

PATIENT
  Age: 64 Year
  Sex: Female

DRUGS (4)
  1. DALIRESP (ROFLUMILAST) (500 MICROGRAM, TABLETS) [Suspect]
     Indication: CHRONIC OBSTRUCTIVE PULMONARY DISEASE
     Dosage: 500 MCG, 1 IN 1 D
     Route: 048
     Dates: start: 20130921
  2. WELLBUTRIN (BUPROPION HYDROCHLORIDE) (BUPROPION HYDROCHLORIDE) [Concomitant]
  3. SPIRIVA (TIOTROPIUM BROMIDE) (TIOTROPIUM BROMIDE) [Concomitant]
  4. ADVAIR (SERETIDE) (SERETIDE) [Concomitant]

REACTIONS (6)
  - Insomnia [None]
  - Therapeutic response unexpected [None]
  - Nausea [None]
  - Headache [None]
  - Myalgia [None]
  - Dyspepsia [None]
